FAERS Safety Report 7518623-X (Version None)
Quarter: 2011Q2

REPORT INFORMATION
  Report Type: 
  Country: None (occurrence: None)
  Receive Date: 20110602
  Receipt Date: 20110516
  Transmission Date: 20111010
  Serious: No
  Sender: FDA-Public Use
  Company Number: US-B.I. PHARMACEUTICALS,INC./RIDGEFIELD-2011-BP-13249BP

PATIENT
  Sex: Male

DRUGS (8)
  1. OCEAN NASAL SPRAY [Concomitant]
     Indication: PROPHYLAXIS
  2. TERAZOSIN HCL [Concomitant]
     Indication: BENIGN PROSTATIC HYPERPLASIA
  3. ASPIRIN [Concomitant]
     Indication: PROPHYLAXIS
  4. M.V.I. [Concomitant]
     Indication: PROPHYLAXIS
  5. OMEPRAZOLE [Concomitant]
     Indication: GASTROOESOPHAGEAL REFLUX DISEASE
  6. LISINOPRIL [Concomitant]
     Indication: HYPERTENSION
  7. SPIRIVA [Suspect]
     Indication: EMPHYSEMA
     Dosage: 18 MCG
     Route: 055
     Dates: start: 20110511
  8. ALBUTEROL SULFATE AUTOHALER [Concomitant]
     Indication: EMPHYSEMA

REACTIONS (2)
  - COUGH [None]
  - DYSPNOEA [None]
